FAERS Safety Report 24752917 (Version 1)
Quarter: 2024Q4

REPORT INFORMATION
  Report Type: Other
  Country: RO (occurrence: RO)
  Receive Date: 20241219
  Receipt Date: 20241219
  Transmission Date: 20250115
  Serious: Yes (Death)
  Sender: B BRAUN
  Company Number: RO-B.Braun Medical Inc.-2167393

PATIENT
  Age: 54 Year
  Sex: Male

DRUGS (5)
  1. MEROPENEM [Suspect]
     Active Substance: MEROPENEM
  2. AMPHOTERICIN B [Suspect]
     Active Substance: AMPHOTERICIN B
  3. TACROLIMUS [Suspect]
     Active Substance: TACROLIMUS
  4. METRONIDAZOLE [Suspect]
     Active Substance: METRONIDAZOLE
  5. LINEZOLID [Suspect]
     Active Substance: LINEZOLID

REACTIONS (1)
  - Drug ineffective [Fatal]
